FAERS Safety Report 10331051 (Version 1)
Quarter: 2014Q3

REPORT INFORMATION
  Report Type: Spontaneous
  Country: US (occurrence: None)
  Receive Date: 20140721
  Receipt Date: 20140721
  Transmission Date: 20150326
  Serious: Yes (Other)
  Sender: FDA-Public Use
  Company Number: None

PATIENT
  Age: 75 Year
  Sex: Male

DRUGS (1)
  1. XTANDI [Suspect]
     Active Substance: ENZALUTAMIDE
     Indication: NEOPLASM MALIGNANT
     Dosage: 40 MG 4 QD ORAL
     Route: 048
     Dates: start: 20140703, end: 20140718

REACTIONS (1)
  - Disease progression [None]

NARRATIVE: CASE EVENT DATE: 20140718
